FAERS Safety Report 5038798-4 (Version None)
Quarter: 2006Q2

REPORT INFORMATION
  Report Type: 
  Country: None (occurrence: None)
  Receive Date: 20060626
  Receipt Date: 20060626
  Transmission Date: 20061013
  Serious: Yes (Other)
  Sender: FDA-Public Use
  Company Number: None

PATIENT
  Sex: Female
  Weight: 58.0604 kg

DRUGS (3)
  1. REMICADE [Suspect]
     Indication: RHEUMATOID ARTHRITIS
     Dosage: 200 MG IV Q 2 MO [APPROX 18 DOSES]
     Route: 042
     Dates: start: 20031201
  2. METHOTREXATE [Concomitant]
  3. FOSAMAX [Concomitant]

REACTIONS (1)
  - LYMPHOMA [None]
